FAERS Safety Report 18692043 (Version 1)
Quarter: 2021Q1

REPORT INFORMATION
  Report Type: Report from Study
  Country: None (occurrence: US)
  Receive Date: 20210102
  Receipt Date: 20210102
  Transmission Date: 20210419
  Serious: Yes (Hospitalization, Other)
  Sender: FDA-Public Use
  Company Number: US-ABBVIE-19K-163-3190258-00

PATIENT
  Age: 56 Year
  Sex: Female
  Weight: 69.46 kg

DRUGS (6)
  1. HUMIRA [Suspect]
     Active Substance: ADALIMUMAB
     Route: 058
     Dates: start: 2020, end: 2020
  2. HUMIRA [Suspect]
     Active Substance: ADALIMUMAB
     Route: 058
     Dates: start: 202010
  3. HUMIRA [Suspect]
     Active Substance: ADALIMUMAB
     Route: 058
     Dates: start: 2013, end: 2018
  4. METHOTREXATE. [Concomitant]
     Active Substance: METHOTREXATE
     Indication: RHEUMATOID ARTHRITIS
  5. HUMIRA [Suspect]
     Active Substance: ADALIMUMAB
     Indication: RHEUMATOID ARTHRITIS
     Route: 058
     Dates: end: 2013
  6. HUMIRA [Suspect]
     Active Substance: ADALIMUMAB
     Route: 058
     Dates: start: 2019, end: 202001

REACTIONS (8)
  - Hypoaesthesia [Recovered/Resolved]
  - Rheumatoid arthritis [Recovering/Resolving]
  - Rheumatoid arthritis [Recovered/Resolved]
  - Hip arthroplasty [Unknown]
  - Rheumatoid arthritis [Recovered/Resolved]
  - Back pain [Not Recovered/Not Resolved]
  - Vaginal infection [Not Recovered/Not Resolved]
  - Spinal fusion surgery [Unknown]

NARRATIVE: CASE EVENT DATE: 2013
